FAERS Safety Report 23457847 (Version 4)
Quarter: 2025Q4

REPORT INFORMATION
  Report Type: Spontaneous
  Country: US (occurrence: US)
  Receive Date: 20240130
  Receipt Date: 20251014
  Transmission Date: 20260117
  Serious: No
  Sender: SANOFI AVENTIS
  Company Number: US-SA-SAC20240123000427

PATIENT
  Age: 63 Year
  Sex: Female

DRUGS (1)
  1. DUPIXENT [Suspect]
     Active Substance: DUPILUMAB
     Indication: Neurodermatitis
     Dosage: 300 MG, QOW
     Route: 058
     Dates: end: 2024

REACTIONS (3)
  - Pruritus [Recovering/Resolving]
  - Injection site pain [Unknown]
  - Neurodermatitis [Recovered/Resolved]

NARRATIVE: CASE EVENT DATE: 20250901
